FAERS Safety Report 24374312 (Version 1)
Quarter: 2024Q3

REPORT INFORMATION
  Report Type: Spontaneous
  Country: US (occurrence: US)
  Receive Date: 20240927
  Receipt Date: 20240927
  Transmission Date: 20241016
  Serious: No
  Sender: INCYTE
  Company Number: US-INCYTE CORPORATION-2024IN009867

PATIENT

DRUGS (1)
  1. OPZELURA [Suspect]
     Active Substance: RUXOLITINIB PHOSPHATE
     Dosage: 1.5 PERCENT, 60 GM, BID (APPLY A THIN LAYER TO AFFECTED AREA(S) TWICE DAILY AS DIRECTED)
     Route: 061
     Dates: start: 20240801

REACTIONS (1)
  - Alopecia [Unknown]
